FAERS Safety Report 16709635 (Version 10)
Quarter: 2022Q1

REPORT INFORMATION
  Report Type: Report from Study
  Country: US (occurrence: US)
  Receive Date: 20190816
  Receipt Date: 20220125
  Transmission Date: 20220423
  Serious: Yes (Life-Threatening, Hospitalization, Other)
  Sender: FDA-Public Use
  Company Number: US-BRISTOL-MYERS SQUIBB COMPANY-BMS-2018-107528

PATIENT
  Age: 75 Year
  Sex: Male
  Weight: 196 kg

DRUGS (59)
  1. NIVOLUMAB [Suspect]
     Active Substance: NIVOLUMAB
     Indication: Lung neoplasm malignant
     Dosage: 1 DOSAGE FORM, Q2WK
     Route: 065
     Dates: start: 20170616, end: 20181213
  2. NIVOLUMAB [Suspect]
     Active Substance: NIVOLUMAB
     Dosage: 1 DOSAGE FORM, Q2WK
     Route: 065
     Dates: start: 20181227
  3. NIVOLUMAB [Suspect]
     Active Substance: NIVOLUMAB
     Dosage: 1 DOSAGE FORM, Q2WK
     Route: 065
     Dates: start: 20190207, end: 20190207
  4. NIVOLUMAB [Suspect]
     Active Substance: NIVOLUMAB
     Dosage: 1 DOSAGE FORM, Q2WK
     Route: 065
     Dates: start: 20190221, end: 20190221
  5. NIVOLUMAB [Suspect]
     Active Substance: NIVOLUMAB
     Dosage: 1 DOSAGE FORM, Q2WK
     Route: 065
     Dates: start: 20190307, end: 20190307
  6. NIVOLUMAB [Suspect]
     Active Substance: NIVOLUMAB
     Dosage: 1 DOSAGE FORM, Q2WK
     Route: 065
     Dates: start: 20190404, end: 20190404
  7. NIVOLUMAB [Suspect]
     Active Substance: NIVOLUMAB
     Dosage: 1 DOSAGE FORM, Q2WK
     Route: 065
     Dates: start: 20190418, end: 20190418
  8. NIVOLUMAB [Suspect]
     Active Substance: NIVOLUMAB
     Dosage: 1 DOSAGE FORM, Q2WK
     Route: 065
     Dates: start: 20190221, end: 20190221
  9. NIVOLUMAB [Suspect]
     Active Substance: NIVOLUMAB
     Dosage: 1 DOSAGE FORM, Q2WK
     Route: 065
     Dates: start: 20190307, end: 20190307
  10. NIVOLUMAB [Suspect]
     Active Substance: NIVOLUMAB
     Dosage: 1 DOSAGE FORM, Q2WK
     Route: 065
     Dates: start: 20190404, end: 20190404
  11. NIVOLUMAB [Suspect]
     Active Substance: NIVOLUMAB
     Dosage: 1 DOSAGE FORM, Q2WK
     Route: 065
     Dates: start: 20190418, end: 20190418
  12. NORVASC [Concomitant]
     Active Substance: AMLODIPINE BESYLATE
     Indication: Product used for unknown indication
     Dosage: 5 MG, QD
     Route: 048
     Dates: start: 2007
  13. DYPHYLLINE [Concomitant]
     Active Substance: DYPHYLLINE
     Indication: Product used for unknown indication
     Dosage: 137 ?G, BID
     Route: 045
     Dates: start: 200112
  14. OPTIVAR [Concomitant]
     Active Substance: AZELASTINE HYDROCHLORIDE
     Indication: Product used for unknown indication
     Dosage: 0.05 %, UNK
     Route: 047
     Dates: start: 2001
  15. BIFIDOBACTERIUM ANIMALIS LACTIS [Concomitant]
     Active Substance: BIFIDOBACTERIUM ANIMALIS LACTIS
     Indication: Product used for unknown indication
     Dosage: UNK, QD
     Route: 048
     Dates: start: 2010
  16. ZYRTEC [Concomitant]
     Active Substance: CETIRIZINE HYDROCHLORIDE
     Indication: Product used for unknown indication
     Dosage: 10 MG, QD
     Route: 048
     Dates: start: 2005
  17. VIBRAMYCIN [Concomitant]
     Active Substance: DOXYCYCLINE
     Indication: Product used for unknown indication
     Dosage: 100 MG, QD
     Route: 048
     Dates: start: 2007
  18. NEURONTIN [Concomitant]
     Active Substance: GABAPENTIN
     Indication: Product used for unknown indication
     Dosage: 100 MG, PRN
     Route: 048
     Dates: start: 2014
  19. MAGNESIUM [Concomitant]
     Active Substance: MAGNESIUM
     Indication: Product used for unknown indication
     Dosage: 250 MG, QD
     Route: 048
     Dates: start: 201012
  20. CRESTOR [Concomitant]
     Active Substance: ROSUVASTATIN CALCIUM
     Indication: Product used for unknown indication
     Dosage: 5 MG, QD
     Route: 048
     Dates: start: 2007
  21. MORNIFLUMATE [Concomitant]
     Active Substance: MORNIFLUMATE
     Indication: Product used for unknown indication
     Dosage: 0.4 MG, QD
     Route: 048
     Dates: start: 2012
  22. VALTREX [Concomitant]
     Active Substance: VALACYCLOVIR HYDROCHLORIDE
     Indication: Product used for unknown indication
     Dosage: 500 MG, QD
     Route: 048
     Dates: start: 2014
  23. ZOVIRAX [Concomitant]
     Active Substance: ACYCLOVIR
     Indication: Product used for unknown indication
     Dosage: 400 MG, BID
     Route: 048
     Dates: start: 20170921
  24. HYDROCORTISONE [Concomitant]
     Active Substance: HYDROCORTISONE
     Indication: Product used for unknown indication
     Dosage: 2.5 %, PRN
     Route: 061
     Dates: start: 20180621
  25. SYNTHROID [Concomitant]
     Active Substance: LEVOTHYROXINE SODIUM
     Indication: Product used for unknown indication
     Dosage: 50 ?G, UNK
     Route: 048
     Dates: start: 20180511, end: 20180620
  26. SYNTHROID [Concomitant]
     Active Substance: LEVOTHYROXINE SODIUM
     Dosage: 50 ?G, UNK
     Route: 048
     Dates: start: 20180621, end: 20180723
  27. SYNTHROID [Concomitant]
     Active Substance: LEVOTHYROXINE SODIUM
     Dosage: 100 ?G, QD
     Route: 048
     Dates: start: 20180624, end: 20180802
  28. SYNTHROID [Concomitant]
     Active Substance: LEVOTHYROXINE SODIUM
     Dosage: 125 ?G, QD
     Route: 048
     Dates: start: 20180803
  29. DECADRON [Concomitant]
     Active Substance: DEXAMETHASONE
     Indication: Metastases to central nervous system
     Dosage: 2 MG, TID
     Route: 048
     Dates: start: 20180913, end: 20180926
  30. DECADRON [Concomitant]
     Active Substance: DEXAMETHASONE
     Indication: Oedema
     Dosage: 2 MG, BID
     Route: 048
     Dates: start: 20180927
  31. DECADRON [Concomitant]
     Active Substance: DEXAMETHASONE
     Dosage: 2 MG, UNK, ONCE
     Route: 048
     Dates: start: 20181111, end: 20181111
  32. DECADRON [Concomitant]
     Active Substance: DEXAMETHASONE
     Dosage: 2 MG, UNK, ONCE
     Route: 048
     Dates: start: 20180927, end: 20181110
  33. DECADRON [Concomitant]
     Active Substance: DEXAMETHASONE
     Dosage: 4 MILLIGRAM, TID
     Route: 048
     Dates: start: 20190322, end: 20190403
  34. DECADRON [Concomitant]
     Active Substance: DEXAMETHASONE
     Dosage: 4 MILLIGRAM, BID
     Route: 048
     Dates: start: 20190404, end: 20190418
  35. CIPRODEX [Concomitant]
     Active Substance: CIPROFLOXACIN HYDROCHLORIDE\DEXAMETHASONE
     Indication: Product used for unknown indication
     Dosage: UNK UNK, BID
     Route: 065
     Dates: start: 20170818, end: 20170828
  36. AMOXICILLIN [Concomitant]
     Active Substance: AMOXICILLIN
     Indication: Product used for unknown indication
     Dosage: 500 MG, Q12H
     Route: 048
     Dates: start: 20180716, end: 20180722
  37. TYLENOL [Concomitant]
     Active Substance: ACETAMINOPHEN
     Indication: Product used for unknown indication
     Dosage: 650 MG, PRN
     Route: 048
     Dates: start: 20181111, end: 20181112
  38. LIPITOR [Concomitant]
     Active Substance: ATORVASTATIN CALCIUM
     Indication: Product used for unknown indication
     Dosage: UNK
     Route: 048
  39. HEPARIN [Concomitant]
     Active Substance: HEPARIN SODIUM
     Indication: Deep vein thrombosis
     Dosage: 5000 UNIT, BID
     Route: 058
     Dates: start: 20181111, end: 20181117
  40. HEPARIN [Concomitant]
     Active Substance: HEPARIN SODIUM
     Dosage: 5000 UNIT, TID
     Route: 058
     Dates: start: 20190814, end: 20190826
  41. METHYLPREDNISOLONE [Concomitant]
     Active Substance: METHYLPREDNISOLONE
     Indication: Deep vein thrombosis
     Dosage: 80 MG, UNK, DAILY
     Route: 042
     Dates: start: 20181113, end: 20181115
  42. ZOSYN [Concomitant]
     Active Substance: PIPERACILLIN SODIUM\TAZOBACTAM SODIUM
     Indication: Product used for unknown indication
     Dosage: 4.5 G, Q8H
     Route: 042
     Dates: start: 20181111, end: 20181112
  43. ZOSYN [Concomitant]
     Active Substance: PIPERACILLIN SODIUM\TAZOBACTAM SODIUM
     Dosage: 2.25 G, Q8H
     Route: 042
     Dates: start: 20181112, end: 20181115
  44. ZOSYN [Concomitant]
     Active Substance: PIPERACILLIN SODIUM\TAZOBACTAM SODIUM
     Dosage: 47 GRAM, Q6H
     Route: 042
     Dates: start: 20190814, end: 20190826
  45. PREDNISONE [Concomitant]
     Active Substance: PREDNISONE
     Indication: Product used for unknown indication
     Dosage: 10 MG, UNK, DAILY
     Route: 048
     Dates: start: 20181116, end: 20181212
  46. PREDNISONE [Concomitant]
     Active Substance: PREDNISONE
     Dosage: 10 MG, UNK, DAILY
     Route: 048
     Dates: start: 20181213
  47. PREDNISONE [Concomitant]
     Active Substance: PREDNISONE
     Dosage: 30 MG, UNK, DAILY
     Route: 048
     Dates: start: 20181116, end: 20181212
  48. FLORASTOR [LACTOBACILLUS ACIDOPHILUS] [Concomitant]
     Indication: Product used for unknown indication
     Dosage: 250 MG, BID
     Route: 048
     Dates: start: 20181111, end: 20181117
  49. SODIUM CHLORIDE [Concomitant]
     Active Substance: SODIUM CHLORIDE
     Indication: Product used for unknown indication
     Dosage: 25 PERCENT
     Route: 042
     Dates: start: 20181111, end: 20181114
  50. SODIUM CHLORIDE [Concomitant]
     Active Substance: SODIUM CHLORIDE
     Indication: Fluid replacement
     Dosage: 0.9 PERCENT UNK, DAILY
     Route: 042
     Dates: start: 20181111, end: 20181114
  51. SODIUM CHLORIDE [Concomitant]
     Active Substance: SODIUM CHLORIDE
     Dosage: 0.9 PERCENT, QID
     Route: 042
     Dates: start: 20190814, end: 20190814
  52. SODIUM CHLORIDE [Concomitant]
     Active Substance: SODIUM CHLORIDE
     Dosage: 0.45 PERCENT, CONTINUING
     Route: 042
     Dates: start: 20190814, end: 20190814
  53. SODIUM CHLORIDE [Concomitant]
     Active Substance: SODIUM CHLORIDE
     Dosage: 0.9 UNK
     Route: 042
     Dates: start: 20190815, end: 20190816
  54. VANCOCIN [Concomitant]
     Active Substance: VANCOMYCIN HYDROCHLORIDE
     Indication: Product used for unknown indication
     Dosage: 1000 MG, Q12H
     Route: 042
     Dates: start: 20181111, end: 20181115
  55. HYPROMELLOSES [Concomitant]
     Active Substance: HYPROMELLOSES
     Indication: Dry eye
     Dosage: 0.4 %, PRN
     Route: 042
     Dates: start: 20181113, end: 20181113
  56. REMERON [Concomitant]
     Active Substance: MIRTAZAPINE
     Indication: Product used for unknown indication
     Dosage: 7.5 MG, QD
     Route: 048
     Dates: start: 20181227
  57. MAGNESIUM SULFATE [Concomitant]
     Active Substance: MAGNESIUM SULFATE
     Indication: Product used for unknown indication
     Dosage: 1 GRAM, BID
     Route: 042
     Dates: start: 20190815, end: 20190815
  58. DEXTROSE [Concomitant]
     Active Substance: DEXTROSE
     Indication: Fluid replacement
     Dosage: 5 PERCENT
     Route: 042
     Dates: start: 20190814, end: 20190815
  59. PEPCID [Concomitant]
     Active Substance: FAMOTIDINE
     Indication: Prophylaxis
     Dosage: 20 MILLIGRAM, DAILY
     Route: 042
     Dates: start: 20190823, end: 20190826

REACTIONS (15)
  - Acute respiratory failure [Not Recovered/Not Resolved]
  - Lactic acidosis [Not Recovered/Not Resolved]
  - Acute kidney injury [Not Recovered/Not Resolved]
  - Sepsis [Not Recovered/Not Resolved]
  - Rhabdomyolysis [Recovered/Resolved]
  - Myositis [Recovered/Resolved]
  - Atelectasis [Unknown]
  - Dizziness [Unknown]
  - Vomiting [Unknown]
  - Contusion [Unknown]
  - Hypoglycaemia [Unknown]
  - Aspartate aminotransferase increased [Unknown]
  - Proteinuria [Unknown]
  - Blood albumin decreased [Unknown]
  - Anaemia [Unknown]

NARRATIVE: CASE EVENT DATE: 20181111
